FAERS Safety Report 25785463 (Version 1)
Quarter: 2025Q3

REPORT INFORMATION
  Report Type: Spontaneous
  Country: CN (occurrence: CN)
  Receive Date: 20250910
  Receipt Date: 20250910
  Transmission Date: 20251020
  Serious: Yes (Other)
  Sender: ABBVIE
  Company Number: CN-ABBVIE-6449855

PATIENT
  Age: 59 Year
  Sex: Male

DRUGS (3)
  1. VENETOCLAX [Suspect]
     Active Substance: VENETOCLAX
     Indication: Leukaemia
     Dosage: 0.1 GRAM
     Route: 048
     Dates: start: 20250827
  2. AZACITIDINE [Suspect]
     Active Substance: AZACITIDINE
     Indication: Leukaemia
     Route: 042
     Dates: start: 20250827, end: 20250902
  3. VORICONAZOLE [Suspect]
     Active Substance: VORICONAZOLE
     Indication: Leukaemia
     Route: 048
     Dates: start: 20250827, end: 20250903

REACTIONS (2)
  - Myelosuppression [Unknown]
  - Platelet count decreased [Unknown]

NARRATIVE: CASE EVENT DATE: 20250901
